FAERS Safety Report 5530608-1 (Version None)
Quarter: 2007Q4

REPORT INFORMATION
  Report Type: 
  Country: None (occurrence: None)
  Receive Date: 20071130
  Receipt Date: 20071126
  Transmission Date: 20080405
  Serious: Yes (Congenital Anomaly)
  Sender: FDA-Public Use
  Company Number: A0659473A

PATIENT
  Sex: Male

DRUGS (2)
  1. LAMICTAL [Suspect]
     Indication: EPILEPSY
     Dosage: 200MG PER DAY
  2. ASPIRIN [Concomitant]
     Route: 048

REACTIONS (6)
  - CATARACT CONGENITAL [None]
  - CONGENITAL CYSTIC KIDNEY DISEASE [None]
  - DRUG EXPOSURE DURING PREGNANCY [None]
  - NEOVASCULARISATION [None]
  - PATENT DUCTUS ARTERIOSUS [None]
  - RETINAL DETACHMENT [None]
